FAERS Safety Report 16500640 (Version 1)
Quarter: 2019Q2

REPORT INFORMATION
  Report Type: Spontaneous
  Country: US (occurrence: US)
  Receive Date: 20190520
  Receipt Date: 20190520
  Transmission Date: 20190711
  Serious: No
  Sender: FDA-Public Use
  Company Number: None

PATIENT
  Age: 25 Month
  Sex: Female

DRUGS (1)
  1. KALYDECO [Suspect]
     Active Substance: IVACAFTOR
     Dates: start: 20190513

REACTIONS (4)
  - Dizziness [None]
  - Abdominal discomfort [None]
  - Fatigue [None]
  - Therapeutic response unexpected [None]

NARRATIVE: CASE EVENT DATE: 20190520
